FAERS Safety Report 21866475 (Version 13)
Quarter: 2024Q3

REPORT INFORMATION
  Report Type: Spontaneous
  Country: US (occurrence: US)
  Receive Date: 20230116
  Receipt Date: 20240918
  Transmission Date: 20241017
  Serious: No
  Sender: PFIZER
  Company Number: US-PFIZER INC-PV202300006190

PATIENT
  Age: 11 Year
  Sex: Female
  Weight: 31.3 kg

DRUGS (2)
  1. GENOTROPIN [Suspect]
     Active Substance: SOMATROPIN
     Indication: Turner^s syndrome
     Dosage: 1.4 MG 6 DAYS/WEEK
     Dates: start: 202010
  2. GENOTROPIN [Suspect]
     Active Substance: SOMATROPIN
     Indication: Short stature

REACTIONS (3)
  - Device use issue [Unknown]
  - Device power source issue [Unknown]
  - Device information output issue [Unknown]
